FAERS Safety Report 24342665 (Version 2)
Quarter: 2024Q4

REPORT INFORMATION
  Report Type: Other
  Country: LB (occurrence: LB)
  Receive Date: 20240920
  Receipt Date: 20241001
  Transmission Date: 20250114
  Serious: Yes (Life-Threatening, Hospitalization)
  Sender: ALVOGEN
  Company Number: LB-ALVOGEN-2024095483

PATIENT
  Age: 24 Year
  Sex: Female

DRUGS (3)
  1. NIFEDIPINE [Suspect]
     Active Substance: NIFEDIPINE
     Indication: Premature labour
     Dosage: 30 MG DAILY ON FIRST 2 DAYS.?STARTED 3 DAYS PRIOR TO PRESENTATION
     Route: 048
  2. NIFEDIPINE [Suspect]
     Active Substance: NIFEDIPINE
     Indication: Premature labour
     Dosage: ON THE THIRD DAY, A TOTAL OF 120 MG?WAS TAKEN.
     Route: 048
  3. MIDAZOLAM [Suspect]
     Active Substance: MIDAZOLAM
     Indication: Sedation

REACTIONS (5)
  - Acute pulmonary oedema [Recovering/Resolving]
  - Hypotension [Recovered/Resolved]
  - Maternal exposure during pregnancy [Unknown]
  - Product use issue [Unknown]
  - Off label use [Unknown]
